FAERS Safety Report 19800129 (Version 2)
Quarter: 2022Q2

REPORT INFORMATION
  Report Type: Spontaneous
  Country: US (occurrence: US)
  Receive Date: 20210908
  Receipt Date: 20220520
  Transmission Date: 20220720
  Serious: No
  Sender: FDA-Public Use
  Company Number: US-GILEAD-2021-0547348

PATIENT
  Sex: Male
  Weight: 98.413 kg

DRUGS (51)
  1. VIREAD [Suspect]
     Active Substance: TENOFOVIR DISOPROXIL FUMARATE
     Indication: HIV infection
     Dosage: UNK
     Route: 048
     Dates: start: 2015
  2. VIREAD [Suspect]
     Active Substance: TENOFOVIR DISOPROXIL FUMARATE
     Dosage: UNK
     Route: 048
     Dates: start: 201301, end: 201505
  3. STRIBILD [Suspect]
     Active Substance: COBICISTAT\ELVITEGRAVIR\EMTRICITABINE\TENOFOVIR DISOPROXIL FUMARATE
     Indication: HIV infection
     Dosage: UNK
     Route: 048
     Dates: start: 201505, end: 201901
  4. BIKTARVY [Concomitant]
     Active Substance: BICTEGRAVIR SODIUM\EMTRICITABINE\TENOFOVIR ALAFENAMIDE FUMARATE
  5. EPIVIR [Concomitant]
     Active Substance: LAMIVUDINE
  6. INVIRASE [Concomitant]
     Active Substance: SAQUINAVIR MESYLATE
  7. LEXIVA [Concomitant]
     Active Substance: FOSAMPRENAVIR CALCIUM
  8. NORVIR [Concomitant]
     Active Substance: RITONAVIR
  9. RETROVIR [Concomitant]
     Active Substance: ZIDOVUDINE
  10. REYATAZ [Concomitant]
     Active Substance: ATAZANAVIR SULFATE
  11. SUSTIVA [Concomitant]
     Active Substance: EFAVIRENZ
  12. TRIUMEQ [Concomitant]
     Active Substance: ABACAVIR SULFATE\DOLUTEGRAVIR SODIUM\LAMIVUDINE
  13. VIRACEPT [Concomitant]
     Active Substance: NELFINAVIR MESYLATE
  14. ZIAGEN [Concomitant]
     Active Substance: ABACAVIR SULFATE
  15. LISINOPRIL [Concomitant]
     Active Substance: LISINOPRIL
  16. SULFAMETHOXAZOLE\TRIMETHOPRIM [Concomitant]
     Active Substance: SULFAMETHOXAZOLE\TRIMETHOPRIM
  17. ROSUVASTATIN [Concomitant]
     Active Substance: ROSUVASTATIN
  18. NIACIN [Concomitant]
     Active Substance: NIACIN
  19. KETOCONAZOLE [Concomitant]
     Active Substance: KETOCONAZOLE
  20. CELECOXIB [Concomitant]
     Active Substance: CELECOXIB
  21. OXYCODONE [Concomitant]
     Active Substance: OXYCODONE
  22. DICLOFENAC [Concomitant]
     Active Substance: DICLOFENAC
  23. CYCLOBENZAPRINE [Concomitant]
     Active Substance: CYCLOBENZAPRINE
  24. METHYLPREDNISOLONE [Concomitant]
     Active Substance: METHYLPREDNISOLONE
  25. HYDROCODONE [Concomitant]
     Active Substance: HYDROCODONE
  26. CAPECITABINE [Concomitant]
     Active Substance: CAPECITABINE
  27. TRIAMCINOLONE [Concomitant]
     Active Substance: TRIAMCINOLONE
  28. PROCHLORPERAZINE [Concomitant]
     Active Substance: PROCHLORPERAZINE
  29. ONDANSETRON [Concomitant]
     Active Substance: ONDANSETRON
  30. IBUPROFEN [Concomitant]
     Active Substance: IBUPROFEN
  31. FENOFIBRATE [Concomitant]
     Active Substance: FENOFIBRATE
  32. TRAMADOL [Concomitant]
     Active Substance: TRAMADOL
  33. PROMETHAZINE [Concomitant]
     Active Substance: PROMETHAZINE HYDROCHLORIDE
  34. DOXYCYCLINE HYCLATE [Concomitant]
     Active Substance: DOXYCYCLINE HYCLATE
  35. TAMSULOSIN [Concomitant]
     Active Substance: TAMSULOSIN
  36. KETOROLAC [Concomitant]
     Active Substance: KETOROLAC TROMETHAMINE
  37. METOPROLOL [Concomitant]
     Active Substance: METOPROLOL
  38. CLOPIDOGREL [Concomitant]
     Active Substance: CLOPIDOGREL BISULFATE
  39. CRESTOR [Concomitant]
     Active Substance: ROSUVASTATIN CALCIUM
  40. NITROSTAT [Concomitant]
     Active Substance: NITROGLYCERIN
  41. NIASPAN [Concomitant]
     Active Substance: NIACIN
  42. TRILIPIX [Concomitant]
     Active Substance: FENOFIBRIC ACID
  43. SIMCOR [NICOTINIC ACID;SIMVASTATIN] [Concomitant]
  44. FLUOROURACIL [Concomitant]
     Active Substance: FLUOROURACIL
  45. LIDODERM [Concomitant]
     Active Substance: LIDOCAINE
  46. PROAIR HFA [Concomitant]
     Active Substance: ALBUTEROL SULFATE
  47. FOLIC ACID [Concomitant]
     Active Substance: FOLIC ACID
  48. VITAMIN D2 [Concomitant]
     Active Substance: ERGOCALCIFEROL
  49. HYDROCHLOROTHIAZIDE [Concomitant]
     Active Substance: HYDROCHLOROTHIAZIDE
  50. PERMETHRIN [Concomitant]
     Active Substance: PERMETHRIN
  51. ASPIRIN [Concomitant]
     Active Substance: ASPIRIN

REACTIONS (11)
  - Bone density decreased [Unknown]
  - Pain [Not Recovered/Not Resolved]
  - Emotional distress [Not Recovered/Not Resolved]
  - Anxiety [Not Recovered/Not Resolved]
  - Anhedonia [Not Recovered/Not Resolved]
  - Osteopenia [Not Recovered/Not Resolved]
  - Back pain [Unknown]
  - Renal disorder [Unknown]
  - Gait disturbance [Not Recovered/Not Resolved]
  - Depression [Not Recovered/Not Resolved]
  - Somnolence [Unknown]

NARRATIVE: CASE EVENT DATE: 20160101
